FAERS Safety Report 18118516 (Version 4)
Quarter: 2020Q4

REPORT INFORMATION
  Report Type: Report from Study
  Country: JP (occurrence: JP)
  Receive Date: 20200806
  Receipt Date: 20201007
  Transmission Date: 20210113
  Serious: Yes (Hospitalization)
  Sender: FDA-Public Use
  Company Number: JP-ASTELLAS-2020JP011533

PATIENT
  Age: 66 Year
  Sex: Female
  Weight: 62 kg

DRUGS (27)
  1. ROSUVASTATIN. [Concomitant]
     Active Substance: ROSUVASTATIN
     Indication: HYPERLIPIDAEMIA
     Route: 048
  2. ACTOS [Concomitant]
     Active Substance: PIOGLITAZONE HYDROCHLORIDE
     Indication: DIABETES MELLITUS
     Route: 048
  3. AZUNOL GARGLE LIQUID [Concomitant]
     Indication: INFECTION PROPHYLAXIS
     Dosage: UNK UNK, AS NEEDED
     Route: 065
     Dates: start: 20200302
  4. TEICOPLANIN [Concomitant]
     Active Substance: TEICOPLANIN
     Dosage: UNK UNK, UNKNOWN FREQ.
     Route: 065
     Dates: start: 20200922
  5. LASIX [Concomitant]
     Active Substance: FUROSEMIDE
     Indication: OEDEMA
     Route: 042
     Dates: start: 20200728
  6. ASP2215 [Suspect]
     Active Substance: GILTERITINIB
     Indication: ACUTE MYELOID LEUKAEMIA
     Route: 048
     Dates: start: 20200310
  7. CYTARABINE. [Suspect]
     Active Substance: CYTARABINE
     Indication: ACUTE MYELOID LEUKAEMIA
     Dosage: 100 MG/M2, UNKNOWN FREQ., REMISSION INDUCTION THERAPY DAY 1 TO DAY 7
     Route: 065
     Dates: start: 20200303
  8. CYTARABINE. [Suspect]
     Active Substance: CYTARABINE
     Dosage: 1.5 G/M2, TWICE DAILY, CONSOLIDATION THERAPY DAY 1, 3, 5
     Route: 042
     Dates: start: 20200410
  9. RABEPRAZOLE NA [Concomitant]
     Active Substance: RABEPRAZOLE SODIUM
     Indication: GASTRITIS
     Route: 048
     Dates: start: 20200410
  10. MEROPENEM. [Concomitant]
     Active Substance: MEROPENEM
     Indication: PNEUMONIA
     Dosage: UNK UNK, UNKNOWN FREQ.
     Route: 065
     Dates: start: 20200823, end: 20200904
  11. ASP2215 [Suspect]
     Active Substance: GILTERITINIB
     Dosage: 80 MG, ONCE DAILY, EACH CYCLE DAY1-14
     Route: 048
     Dates: start: 20200710, end: 20200723
  12. TRULICITY [Concomitant]
     Active Substance: DULAGLUTIDE
     Indication: DIABETES MELLITUS
     Dosage: 75 MG, ONCE WEEKLY, THURSDAY
     Route: 058
  13. MAGNESIUM OXIDE. [Concomitant]
     Active Substance: MAGNESIUM OXIDE
     Indication: CONSTIPATION
     Dosage: 330 MG, THRICE DAILY, SELF-ADJUSTABLE
     Route: 048
     Dates: start: 20200301
  14. LOXONIN [Concomitant]
     Active Substance: LOXOPROFEN SODIUM
     Indication: ANTIPYRESIS
     Dosage: UNK UNK, UNKNOWN FREQ.
     Route: 065
     Dates: start: 20200726
  15. FUNGUARD [Concomitant]
     Active Substance: MICAFUNGIN SODIUM
     Indication: FEBRILE NEUTROPENIA
     Route: 041
     Dates: start: 20200728, end: 20200731
  16. CYTARABINE. [Suspect]
     Active Substance: CYTARABINE
     Dosage: 1.5 G/M2, TWICE DAILY, CONSOLIDATION THERAPY CYCLE 4 DAY 1, 3, 5
     Route: 042
     Dates: start: 20200710, end: 20200714
  17. URSODEOXYCHOLIC ACID [Concomitant]
     Active Substance: URSODIOL
     Indication: LIVER DISORDER
     Route: 048
     Dates: start: 20200315
  18. FILGRASTIM BS [FILGRASTIM BIOSIMILAR 1] [Concomitant]
     Indication: INFECTION PROPHYLAXIS
     Route: 058
     Dates: start: 20200716
  19. MEROPENEM. [Concomitant]
     Active Substance: MEROPENEM
     Indication: FEBRILE NEUTROPENIA
     Route: 041
     Dates: start: 20200728, end: 20200811
  20. CEFEPIME DIHYDROCHLORIDE [Concomitant]
     Active Substance: CEFEPIME HYDROCHLORIDE
     Indication: INFECTION PROPHYLAXIS
     Dosage: UNK UNK, UNKNOWN FREQ.
     Route: 065
     Dates: start: 20200726
  21. DIQUAS [Concomitant]
     Active Substance: DIQUAFOSOL TETRASODIUM
     Indication: DRY EYE
     Dosage: UNK UNK, 6 TIMES DAILY
     Route: 047
  22. SOLDEM 3A [Concomitant]
     Active Substance: CARBOHYDRATES\POTASSIUM CHLORIDE\SODIUM CHLORIDE\SODIUM LACTATE
     Indication: DEHYDRATION
     Route: 041
     Dates: start: 20200727
  23. IDARUBICIN [Suspect]
     Active Substance: IDARUBICIN
     Indication: ACUTE MYELOID LEUKAEMIA
     Dosage: 12 MG/M2, ONCE DAILY, DAY 1-3 REMISSION INDUCTION THERAPY CYCLE 1
     Route: 065
     Dates: start: 20200303, end: 20200305
  24. ZETIA [Concomitant]
     Active Substance: EZETIMIBE
     Indication: HYPERLIPIDAEMIA
     Route: 048
  25. SENNOSIDE A [Concomitant]
     Active Substance: SENNOSIDE A
     Indication: CONSTIPATION
     Route: 048
     Dates: start: 20200218
  26. CALONAL [Concomitant]
     Active Substance: ACETAMINOPHEN
     Indication: FEBRILE NEUTROPENIA
     Route: 048
     Dates: start: 20200726
  27. TEICOPLANIN [Concomitant]
     Active Substance: TEICOPLANIN
     Indication: BACTERAEMIA
     Route: 041
     Dates: start: 20200727, end: 20200811

REACTIONS (1)
  - Pneumonia [Not Recovered/Not Resolved]

NARRATIVE: CASE EVENT DATE: 20200731
